FAERS Safety Report 18853696 (Version 1)
Quarter: 2021Q1

REPORT INFORMATION
  Report Type: Spontaneous
  Country: US (occurrence: US)
  Receive Date: 20210205
  Receipt Date: 20210205
  Transmission Date: 20210420
  Serious: No
  Sender: FDA-Public Use
  Company Number: US-PFIZER INC-2021099230

PATIENT

DRUGS (1)
  1. ALPRAZOLAM. [Suspect]
     Active Substance: ALPRAZOLAM
     Dosage: A 0.25 ONCE A DAY HALF IN THE MORNING AND HALF IN THE AFTERNOON, HALF AT NIGHT BEFORE GO TO SLEEP

REACTIONS (1)
  - Drug ineffective [Unknown]
